FAERS Safety Report 24990514 (Version 2)
Quarter: 2025Q1

REPORT INFORMATION
  Report Type: Spontaneous
  Country: FR (occurrence: FR)
  Receive Date: 20250220
  Receipt Date: 20250313
  Transmission Date: 20250409
  Serious: Yes (Other)
  Sender: PFIZER
  Company Number: FR-ROCHE-10000198076

PATIENT
  Age: 45 Year
  Sex: Male

DRUGS (3)
  1. BEVACIZUMAB [Suspect]
     Active Substance: BEVACIZUMAB
     Indication: Pancreatic carcinoma
     Dates: start: 20240716, end: 20240716
  2. CAPECITABINE [Suspect]
     Active Substance: CAPECITABINE
     Indication: Pancreatic carcinoma
     Route: 048
     Dates: start: 20240702, end: 20240715
  3. TEMOZOLOMIDE [Suspect]
     Active Substance: TEMOZOLOMIDE
     Indication: Pancreatic carcinoma
     Route: 048
     Dates: start: 20240711, end: 20240715

REACTIONS (2)
  - Dyslipidaemia [Recovering/Resolving]
  - Xanthoma [Recovering/Resolving]

NARRATIVE: CASE EVENT DATE: 20240923
